FAERS Safety Report 8303715-8 (Version None)
Quarter: 2012Q2

REPORT INFORMATION
  Report Type: 
  Country: None (occurrence: None)
  Receive Date: 20120423
  Receipt Date: 20120413
  Transmission Date: 20120825
  Serious: Yes (Other)
  Sender: FDA-Public Use
  Company Number: US-BAYER-2012-036537

PATIENT
  Sex: Female

DRUGS (2)
  1. MIRENA [Suspect]
     Dosage: 20 MCG/24HR, CONT
     Route: 015
  2. MIRENA [Suspect]
     Dosage: 20 MCG/24HR, CONT
     Route: 015
     Dates: start: 20110101, end: 20120101

REACTIONS (7)
  - MOOD SWINGS [None]
  - DEVICE DISLOCATION [None]
  - MENORRHAGIA [None]
  - AMENORRHOEA [None]
  - VAGINAL HAEMORRHAGE [None]
  - MENSTRUATION IRREGULAR [None]
  - POST PROCEDURAL HAEMORRHAGE [None]
